FAERS Safety Report 10877361 (Version 4)
Quarter: 2015Q2

REPORT INFORMATION
  Report Type: Spontaneous
  Country: DE (occurrence: DE)
  Receive Date: 20150302
  Receipt Date: 20150615
  Transmission Date: 20150821
  Serious: Yes (Other)
  Sender: FDA-Public Use
  Company Number: DE-BEH-2015049189

PATIENT
  Sex: Male
  Weight: 63.7 kg

DRUGS (9)
  1. HIZENTRA [Suspect]
     Active Substance: HUMAN IMMUNOGLOBULIN G
     Dosage: 2 X 4G/20ML
     Route: 058
     Dates: start: 20130509, end: 20130919
  2. HIZENTRA [Suspect]
     Active Substance: HUMAN IMMUNOGLOBULIN G
     Dosage: 2 X 4G/20ML
     Route: 058
     Dates: start: 20140420, end: 20140831
  3. HIZENTRA [Suspect]
     Active Substance: HUMAN IMMUNOGLOBULIN G
     Dosage: 2 X 4G/20ML
     Route: 058
     Dates: start: 20141123, end: 20150118
  4. HIZENTRA [Suspect]
     Active Substance: HUMAN IMMUNOGLOBULIN G
     Dosage: 2 X 4G/20ML
     Route: 058
     Dates: start: 20130110, end: 20130502
  5. HIZENTRA [Suspect]
     Active Substance: HUMAN IMMUNOGLOBULIN G
     Dosage: 2 X 4G/20ML
     Route: 058
     Dates: start: 20120712, end: 20130103
  6. HIZENTRA [Suspect]
     Active Substance: HUMAN IMMUNOGLOBULIN G
     Dosage: 2 X 4G/20ML
     Route: 058
     Dates: start: 20140213, end: 20140413
  7. HIZENTRA [Suspect]
     Active Substance: HUMAN IMMUNOGLOBULIN G
     Dosage: 2 X 4G/20ML
     Route: 058
     Dates: start: 20140907, end: 20141116
  8. HIZENTRA [Suspect]
     Active Substance: HUMAN IMMUNOGLOBULIN G
     Dosage: 2 X 4G/20ML
     Route: 058
     Dates: start: 20130926, end: 20140206
  9. HIZENTRA [Suspect]
     Active Substance: HUMAN IMMUNOGLOBULIN G
     Dosage: 2 X 4G/20ML
     Route: 058
     Dates: start: 20120503, end: 20120705

REACTIONS (5)
  - Scar [Recovering/Resolving]
  - Injection site necrosis [Recovering/Resolving]
  - Skin ulcer [Recovering/Resolving]
  - Skin irritation [Unknown]
  - Skin induration [Unknown]

NARRATIVE: CASE EVENT DATE: 2013
